FAERS Safety Report 18893229 (Version 1)
Quarter: 2021Q1

REPORT INFORMATION
  Report Type: Other
  Country: US (occurrence: US)
  Receive Date: 20210215
  Receipt Date: 20210215
  Transmission Date: 20210420
  Serious: Yes (Other)
  Sender: FDA-Public Use
  Company Number: US-ROCHE-2763681

PATIENT
  Sex: Male

DRUGS (6)
  1. ROSUVASTATIN. [Concomitant]
     Active Substance: ROSUVASTATIN
  2. TAMULOSIN [Concomitant]
     Active Substance: TAMSULOSIN
  3. WARFARIN [Concomitant]
     Active Substance: WARFARIN
  4. NITROGLYCERIN. [Concomitant]
     Active Substance: NITROGLYCERIN
  5. XELODA [Suspect]
     Active Substance: CAPECITABINE
     Indication: OESOPHAGEAL CARCINOMA
     Dosage: 3 TABLETS TWICE DAILY FOR 21 DAYS AND THEN 7 DAYS OFF
     Route: 048
  6. METOPROLOL. [Concomitant]
     Active Substance: METOPROLOL

REACTIONS (3)
  - Off label use [Unknown]
  - Hypoacusis [Unknown]
  - Intentional product use issue [Unknown]
